FAERS Safety Report 24556936 (Version 2)
Quarter: 2024Q4

REPORT INFORMATION
  Report Type: Spontaneous
  Country: US (occurrence: US)
  Receive Date: 20241028
  Receipt Date: 20241101
  Transmission Date: 20250114
  Serious: Yes (Death, Hospitalization, Other)
  Sender: AMGEN
  Company Number: US-AMGEN-USASP2024203503

PATIENT
  Age: 62 Year
  Sex: Female
  Weight: 88 kg

DRUGS (7)
  1. NEULASTA [Suspect]
     Active Substance: PEGFILGRASTIM
     Indication: Neutropenia
     Dosage: 6 MILLIGRAM
     Route: 065
  2. FILGRASTIM [Suspect]
     Active Substance: FILGRASTIM
     Indication: Neutropenia
     Dosage: 480 MICROGRAM
     Route: 065
     Dates: start: 20230926
  3. FILGRASTIM [Suspect]
     Active Substance: FILGRASTIM
     Route: 065
  4. LURBINECTEDIN [Concomitant]
     Active Substance: LURBINECTEDIN
     Dosage: UNK UNK, Q3WK
     Route: 040
  5. CARBOPLATIN [Concomitant]
     Active Substance: CARBOPLATIN
     Dosage: UNK
     Route: 065
  6. ETOPOSIDE [Concomitant]
     Active Substance: ETOPOSIDE
     Dosage: UNK
     Route: 065
  7. ATEZOLIZUMAB [Concomitant]
     Active Substance: ATEZOLIZUMAB
     Dosage: UNK
     Route: 065

REACTIONS (12)
  - Gastrointestinal haemorrhage [Fatal]
  - Febrile neutropenia [Unknown]
  - Septic shock [Unknown]
  - Hypoxia [Unknown]
  - Diarrhoea [Unknown]
  - Acute kidney injury [Unknown]
  - Thrombocytopenia [Unknown]
  - Pancytopenia [Unknown]
  - Haemoglobin decreased [Unknown]
  - Escherichia test positive [Unknown]
  - Klebsiella test positive [Unknown]
  - Device issue [Unknown]

NARRATIVE: CASE EVENT DATE: 20230926
